FAERS Safety Report 9542900 (Version 2)
Quarter: 2013Q4

REPORT INFORMATION
  Report Type: Spontaneous
  Country: US (occurrence: US)
  Receive Date: 20130923
  Receipt Date: 20131014
  Transmission Date: 20140711
  Serious: Yes (Disabling)
  Sender: FDA-Public Use
  Company Number: US-SANOFI-AVENTIS-2013SA091612

PATIENT
  Age: 65 Year
  Sex: Female
  Weight: 81.64 kg

DRUGS (2)
  1. ALLEGRA 24 HOUR [Suspect]
     Indication: HYPERSENSITIVITY
     Route: 048
     Dates: start: 20130701, end: 20130915
  2. ALLEGRA 24 HOUR [Suspect]
     Indication: HYPERSENSITIVITY

REACTIONS (5)
  - Renal failure chronic [Not Recovered/Not Resolved]
  - Nasal congestion [Recovered/Resolved]
  - Sneezing [Recovered/Resolved]
  - Adverse event [Recovered/Resolved]
  - Drug ineffective [Recovered/Resolved]
